FAERS Safety Report 4526394-4 (Version None)
Quarter: 2004Q4

REPORT INFORMATION
  Report Type: 
  Country: None (occurrence: None)
  Receive Date: 20041213
  Receipt Date: 20041129
  Transmission Date: 20050328
  Serious: Yes (Death, Hospitalization)
  Sender: FDA-Public Use
  Company Number: 2004-UK-01275UK

PATIENT
  Age: 78 Year
  Sex: Male

DRUGS (6)
  1. MOBIC [Suspect]
     Indication: OSTEOPOROSIS
     Dosage: 15 MG (ONCE AT NIGHT) , PO
     Route: 048
     Dates: end: 20040426
  2. CO-DANTHRAMER (DORBANEX) [Concomitant]
  3. ADCAL-D3 (LEKOVIT CA) [Concomitant]
  4. FOSAMAX (ALENDRONATE SODUM) [Concomitant]
  5. CO-CODAMOL (PANADEINE CO) [Concomitant]
  6. BICALUTAMIDE (BICALUTAMIDE0 [Concomitant]

REACTIONS (2)
  - GASTROINTESTINAL HAEMORRHAGE [None]
  - HYPOVOLAEMIC SHOCK [None]
